FAERS Safety Report 15019134 (Version 1)
Quarter: 2018Q2

REPORT INFORMATION
  Report Type: Spontaneous
  Country: US (occurrence: US)
  Receive Date: 20180616
  Receipt Date: 20180616
  Transmission Date: 20180711
  Serious: No
  Sender: FDA-Public Use
  Company Number: US-JNJFOC-20180605050

PATIENT
  Age: 61 Year
  Sex: Male
  Weight: 81.65 kg

DRUGS (1)
  1. ZYTIGA [Suspect]
     Active Substance: ABIRATERONE ACETATE
     Indication: PROSTATE CANCER
     Dosage: 500 MG 2 TABLETS DAILY
     Route: 048
     Dates: start: 20180129

REACTIONS (3)
  - Dysstasia [Recovered/Resolved]
  - Hypersensitivity [Unknown]
  - Dizziness [Recovered/Resolved]

NARRATIVE: CASE EVENT DATE: 201801
